FAERS Safety Report 15322984 (Version 1)
Quarter: 2018Q3

REPORT INFORMATION
  Report Type: Spontaneous
  Country: US (occurrence: US)
  Receive Date: 20180827
  Receipt Date: 20180827
  Transmission Date: 20181010
  Serious: No
  Sender: FDA-Public Use
  Company Number: US-009507513-1808USA004163

PATIENT
  Age: 60 Year
  Sex: Female

DRUGS (2)
  1. EMEND [Suspect]
     Active Substance: APREPITANT
     Indication: PAIN
     Dosage: 510 MG, QD
     Route: 042
  2. EMEND [Suspect]
     Active Substance: APREPITANT
     Indication: NEURALGIA

REACTIONS (1)
  - Off label use [Unknown]
